FAERS Safety Report 5585847-0 (Version None)
Quarter: 2008Q1

REPORT INFORMATION
  Report Type: 
  Country: None (occurrence: None)
  Receive Date: 20080109
  Receipt Date: 20071227
  Transmission Date: 20080703
  Serious: Yes (Hospitalization)
  Sender: FDA-Public Use
  Company Number: JP-GENENTECH-253759

PATIENT
  Sex: Female

DRUGS (4)
  1. BEVACIZUMAB [Suspect]
     Indication: COLON CANCER METASTATIC
     Dosage: 5 MG/KG, UNK
     Route: 041
     Dates: start: 20070620
  2. OXALIPLATIN [Suspect]
     Indication: COLON CANCER METASTATIC
     Dosage: 85 MG/M2, UNK
     Route: 041
     Dates: start: 20070620
  3. FLUOROURACIL [Suspect]
     Indication: COLON CANCER METASTATIC
     Dosage: 300 MG/M2, UNK
     Route: 042
     Dates: start: 20070620
  4. ISOVORIN [Suspect]
     Indication: COLON CANCER METASTATIC
     Dosage: 20 MG/M2, UNK
     Route: 041
     Dates: start: 20070620

REACTIONS (2)
  - BLOOD CREATINE PHOSPHOKINASE INCREASED [None]
  - INTERSTITIAL LUNG DISEASE [None]
